FAERS Safety Report 13998480 (Version 1)
Quarter: 2017Q3

REPORT INFORMATION
  Report Type: Spontaneous
  Country: US (occurrence: None)
  Receive Date: 20170921
  Receipt Date: 20170921
  Transmission Date: 20171128
  Serious: No
  Sender: FDA-Public Use
  Company Number: None

PATIENT
  Weight: 79.8 kg

DRUGS (2)
  1. PERJETA [Suspect]
     Active Substance: PERTUZUMAB
  2. HERCEPTIN [Suspect]
     Active Substance: TRASTUZUMAB

REACTIONS (5)
  - Coronary artery disease [None]
  - Cardiomyopathy [None]
  - Left ventricular dysfunction [None]
  - Cardiac failure [None]
  - Dyspnoea exertional [None]
